FAERS Safety Report 22658602 (Version 1)
Quarter: 2023Q2

REPORT INFORMATION
  Report Type: Spontaneous
  Country: US (occurrence: None)
  Receive Date: 20230629
  Receipt Date: 20230629
  Transmission Date: 20230721
  Serious: Yes (Hospitalization)
  Sender: FDA-Public Use
  Company Number: None

PATIENT
  Age: 59 Year
  Sex: Male
  Weight: 78.7 kg

DRUGS (1)
  1. BC ARTHRITIS [Suspect]
     Active Substance: ASPIRIN\CAFFEINE
     Indication: Arthralgia
     Dosage: FREQUENCY : TWICE A DAY;?
     Route: 048
     Dates: start: 20230624, end: 20230628

REACTIONS (4)
  - Upper gastrointestinal haemorrhage [None]
  - Haematemesis [None]
  - Hypotension [None]
  - Shock haemorrhagic [None]

NARRATIVE: CASE EVENT DATE: 20230628
